FAERS Safety Report 6288880-9 (Version None)
Quarter: 2009Q3

REPORT INFORMATION
  Report Type: 
  Country: None (occurrence: None)
  Receive Date: 20090729
  Receipt Date: 20070403
  Transmission Date: 20100115
  Serious: Yes (Other)
  Sender: FDA-Public Use
  Company Number: US-ASTRAZENECA-2007UW01398

PATIENT
  Age: 19378 Day
  Sex: Male
  Weight: 112.5 kg

DRUGS (16)
  1. SEROQUEL [Suspect]
     Indication: DEPRESSION
     Route: 048
     Dates: start: 20011127, end: 20060824
  2. SEROQUEL [Suspect]
     Dosage: 25 MG-200 MG
     Route: 048
     Dates: start: 20011127
  3. ZYPREXA [Suspect]
     Indication: DEPRESSION
     Route: 048
     Dates: start: 20040224, end: 20040513
  4. THORAZINE [Concomitant]
  5. PREVACID [Concomitant]
     Route: 065
  6. COLACE [Concomitant]
     Route: 065
  7. FLEXERIL [Concomitant]
     Route: 065
  8. VALIUM [Concomitant]
     Route: 065
  9. PERCOCET [Concomitant]
     Route: 065
  10. METHADONE HCL [Concomitant]
     Dosage: 10 MG-400 MG
     Route: 065
  11. NEURONTIN [Concomitant]
     Route: 065
  12. PRILOSEC [Concomitant]
     Route: 065
  13. GEMFIBROZIL [Concomitant]
     Route: 065
  14. LEXAPRO [Concomitant]
     Route: 065
  15. KLONOPIN [Concomitant]
     Route: 065
  16. TRAZODONE [Concomitant]
     Dosage: 100 MG TWO HS
     Route: 065

REACTIONS (2)
  - DIABETES MELLITUS [None]
  - NEUROPATHY PERIPHERAL [None]
